FAERS Safety Report 25860380 (Version 1)
Quarter: 2025Q3

REPORT INFORMATION
  Report Type: Spontaneous
  Country: US (occurrence: US)
  Receive Date: 20250929
  Receipt Date: 20250929
  Transmission Date: 20251020
  Serious: Yes (Hospitalization, Other)
  Sender: AMGEN
  Company Number: US-AMGEN-USASP2025189374

PATIENT
  Age: 68 Year
  Sex: Male

DRUGS (5)
  1. PREDNISONE [Suspect]
     Active Substance: PREDNISONE
     Indication: Immunosuppressant drug therapy
     Route: 065
  2. PIPERACILLIN AND TAZOBACTAM [Concomitant]
     Active Substance: PIPERACILLIN SODIUM\TAZOBACTAM SODIUM
  3. TACROLIMUS [Concomitant]
     Active Substance: TACROLIMUS
     Indication: Immunosuppressant drug therapy
  4. SIROLIMUS [Concomitant]
     Active Substance: SIROLIMUS
     Indication: Immunosuppressant drug therapy
  5. BUDESONIDE [Concomitant]
     Active Substance: BUDESONIDE
     Indication: Immunosuppressant drug therapy

REACTIONS (9)
  - Norovirus infection [Unknown]
  - Pneumonia [Unknown]
  - Cytomegalovirus viraemia [Unknown]
  - Chronic graft versus host disease in intestine [Unknown]
  - Chronic graft versus host disease in skin [Unknown]
  - Oesophageal candidiasis [Unknown]
  - Pneumatosis intestinalis [Unknown]
  - Pneumomediastinum [Unknown]
  - Pneumoperitoneum [Unknown]
